FAERS Safety Report 6471310-1 (Version None)
Quarter: 2009Q4

REPORT INFORMATION
  Report Type: 
  Country: None (occurrence: None)
  Receive Date: 20091201
  Receipt Date: 20091120
  Transmission Date: 20100525
  Serious: Yes (Other)
  Sender: FDA-Public Use
  Company Number: 2009SP037589

PATIENT
  Age: 45 Year
  Sex: Male

DRUGS (8)
  1. AFRIN [Suspect]
     Indication: NASAL CONGESTION
     Dosage: QD;NAS
     Route: 045
  2. AFRIN [Suspect]
     Indication: SLEEP DISORDER
     Dosage: QD;NAS
     Route: 045
  3. CODEINE [Concomitant]
  4. MORPHINE [Concomitant]
  5. OXYCONTIN [Concomitant]
  6. AMBIEN [Concomitant]
  7. XANAX [Concomitant]
  8. LOVASTATIN [Concomitant]

REACTIONS (1)
  - DEPENDENCE [None]
